FAERS Safety Report 8307154-5 (Version None)
Quarter: 2012Q2

REPORT INFORMATION
  Report Type: 
  Country: None (occurrence: None)
  Receive Date: 20120424
  Receipt Date: 20120423
  Transmission Date: 20120825
  Serious: Yes (Death)
  Sender: FDA-Public Use
  Company Number: PHHY2012HK033911

PATIENT

DRUGS (2)
  1. AFINITOR [Suspect]
     Dosage: 10 MG,
  2. AFINITOR [Suspect]
     Dosage: 5 MG,

REACTIONS (2)
  - DEATH [None]
  - THROMBOCYTOPENIA [None]
